FAERS Safety Report 6082355-8 (Version None)
Quarter: 2009Q1

REPORT INFORMATION
  Report Type: 
  Country: None (occurrence: None)
  Receive Date: 20090218
  Receipt Date: 20090205
  Transmission Date: 20090719
  Serious: Yes (Hospitalization, Other)
  Sender: FDA-Public Use
  Company Number: CA-ROCHE-594621

PATIENT
  Sex: Male

DRUGS (12)
  1. PEGASYS [Suspect]
     Route: 058
     Dates: start: 20080916, end: 20081026
  2. RIBAVIRIN [Suspect]
     Route: 048
     Dates: start: 20080916, end: 20081026
  3. ACYCLOVIR [Suspect]
     Indication: CENTRAL NERVOUS SYSTEM VIRAL INFECTION
     Route: 048
     Dates: start: 20081001, end: 20081001
  4. METHADONE HCL [Concomitant]
     Route: 048
     Dates: start: 20000101
  5. HYDROCHLOROTHIAZIDE [Concomitant]
     Route: 048
     Dates: start: 20070101
  6. RAMIPRIL [Concomitant]
     Route: 048
     Dates: start: 20070101
  7. TRAZODONE HCL [Concomitant]
     Indication: DEPRESSION
     Route: 048
  8. MIRTAZAPINE [Concomitant]
     Indication: DEPRESSION
     Route: 048
     Dates: start: 20000101
  9. NAPROSYN [Concomitant]
  10. SEROQUEL [Concomitant]
  11. DIAZEPAM [Concomitant]
  12. CLOTRIMAZOLE [Concomitant]

REACTIONS (8)
  - ANAEMIA MACROCYTIC [None]
  - CENTRAL NERVOUS SYSTEM VIRAL INFECTION [None]
  - CONSTIPATION [None]
  - LEUKOPENIA [None]
  - NEUTROPENIA [None]
  - RED BLOOD CELL COUNT DECREASED [None]
  - URINARY RETENTION [None]
  - WEIGHT DECREASED [None]
